FAERS Safety Report 24619208 (Version 1)
Quarter: 2024Q4

REPORT INFORMATION
  Report Type: Spontaneous
  Country: US (occurrence: US)
  Receive Date: 20241114
  Receipt Date: 20241114
  Transmission Date: 20250114
  Serious: No
  Sender: PFIZER
  Company Number: US-PFIZER INC-202400298126

PATIENT
  Age: 13 Year
  Sex: Male

DRUGS (2)
  1. XELJANZ [Suspect]
     Active Substance: TOFACITINIB CITRATE
     Indication: Juvenile idiopathic arthritis
     Dosage: 4 ML, 2X/DAY, 1 MG/ML ORAL SOLN 240 ML
     Route: 048
  2. OTREXUP [Concomitant]
     Active Substance: METHOTREXATE
     Indication: Juvenile idiopathic arthritis
     Dosage: 0.4 ML, 15 MG AUTO-INJECT 0.4 ML 1^S

REACTIONS (1)
  - Drug ineffective [Unknown]
